FAERS Safety Report 5448371-1 (Version None)
Quarter: 2007Q3

REPORT INFORMATION
  Report Type: 
  Country: None (occurrence: None)
  Receive Date: 20070905
  Receipt Date: 20070828
  Transmission Date: 20080115
  Serious: Yes (Life-Threatening, Hospitalization)
  Sender: FDA-Public Use
  Company Number: 163-21880-07070408

PATIENT
  Age: 64 Year
  Sex: Male

DRUGS (4)
  1. REVLIMID [Suspect]
     Indication: MULTIPLE MYELOMA
     Dosage: 15 MG, X21 DAYS, ORAL
     Route: 048
     Dates: start: 20070202, end: 20070501
  2. DEXAMETHASONE TAB [Suspect]
     Indication: DRUG USE FOR UNKNOWN INDICATION
  3. COUMADIN [Concomitant]
  4. PLATELET TRANSFUSION (PLATELETS, CONCENTRATED) [Concomitant]

REACTIONS (5)
  - DEEP VEIN THROMBOSIS [None]
  - FLUID OVERLOAD [None]
  - JUGULAR VEIN THROMBOSIS [None]
  - PANCYTOPENIA [None]
  - WHITE BLOOD CELL COUNT DECREASED [None]
